FAERS Safety Report 23336348 (Version 5)
Quarter: 2024Q2

REPORT INFORMATION
  Report Type: Report from Study
  Country: JP (occurrence: JP)
  Receive Date: 20231225
  Receipt Date: 20240531
  Transmission Date: 20240716
  Serious: Yes (Death, Life-Threatening, Other)
  Sender: FDA-Public Use
  Company Number: JP-GENMAB-2023-02384

PATIENT
  Age: 70 Year
  Sex: Female
  Weight: 45 kg

DRUGS (7)
  1. EPKINLY [Suspect]
     Active Substance: EPCORITAMAB-BYSP
     Indication: Diffuse large B-cell lymphoma refractory
     Dosage: 0.16 MILLIGRAM, SINGLE,  CYCLE 1, THE FIRST ADMINISTRATION OF EPKINLY
     Route: 058
     Dates: start: 20231127, end: 20231127
  2. EPKINLY [Suspect]
     Active Substance: EPCORITAMAB-BYSP
     Dosage: 0.8 MILLIGRAM, SINGLE, CYCLE 1, THE SECOND ADMINISTRATION OF EPKINLY
     Route: 058
     Dates: start: 20231204, end: 20231204
  3. EPKINLY [Suspect]
     Active Substance: EPCORITAMAB-BYSP
     Dosage: 48 MILLIGRAM, CYCLE 1, THE THIRD ADMINISTRATION OF EPKINLY, THE FOURTH ADMINISTRATION OF EPKINLY,
     Route: 058
     Dates: start: 20231211, end: 20231218
  4. GEMCITABINE [Concomitant]
     Active Substance: GEMCITABINE
     Indication: Diffuse large B-cell lymphoma refractory
     Dosage: UNK, COMBINATION THERAPY
     Route: 041
     Dates: start: 20231201, end: 20231201
  5. CORTICOTROPIN [Concomitant]
     Active Substance: CORTICOTROPIN
     Indication: Prophylaxis
     Dosage: UNK, AT THE TIME OF ADMINISTRATION OF EPKINLY
     Dates: start: 20231127, end: 20231218
  6. ANTIHISTAMINES NOS [Concomitant]
     Active Substance: ANTIHISTAMINES NOS
     Indication: Prophylaxis
     Dosage: UNK, AT THE TIME OF ADMINISTRATION OF EPKINLY
     Dates: start: 20231127, end: 20231218
  7. UNSPECIFIED INGREDIENT [Concomitant]
     Active Substance: UNSPECIFIED INGREDIENT
     Indication: Prophylaxis
     Dosage: UNK, AT THE TIME OF ADMINISTRATION OF EPKINLY
     Dates: start: 20231127, end: 20231218

REACTIONS (6)
  - Bacteraemia [Fatal]
  - Febrile neutropenia [Fatal]
  - Pneumonia [Fatal]
  - Cardiac failure acute [Fatal]
  - Sepsis [Recovered/Resolved]
  - Cytokine release syndrome [Recovering/Resolving]

NARRATIVE: CASE EVENT DATE: 20231209
